APPROVED DRUG PRODUCT: DOXEPIN HYDROCHLORIDE
Active Ingredient: DOXEPIN HYDROCHLORIDE
Strength: EQ 25MG BASE
Dosage Form/Route: CAPSULE;ORAL
Application: N016987 | Product #002
Applicant: NEW RIVER PHARMACEUTICALS INC
Approved: Approved Prior to Jan 1, 1982 | RLD: No | RS: No | Type: DISCN